FAERS Safety Report 21031404 (Version 4)
Quarter: 2022Q4

REPORT INFORMATION
  Report Type: Spontaneous
  Country: US (occurrence: US)
  Receive Date: 20220701
  Receipt Date: 20221216
  Transmission Date: 20230113
  Serious: Yes (Other)
  Sender: FDA-Public Use
  Company Number: US-AMGEN-USASP2022107316

PATIENT
  Age: 70 Year
  Sex: Female
  Weight: 58.05 kg

DRUGS (17)
  1. PROLIA [Suspect]
     Active Substance: DENOSUMAB
     Indication: Osteoporosis postmenopausal
     Dosage: 60 MILLIGRAM/ML, Q6MO
     Route: 058
     Dates: start: 201605
  2. MULTI MINERAL [Concomitant]
     Dosage: 3 TABS DAILY, QD
     Route: 065
     Dates: start: 20150526
  3. Nordic naturals dha [Concomitant]
     Dosage: 300DHA1 TAB DAILY
     Route: 065
     Dates: start: 20150808
  4. CALCIUM [Concomitant]
     Active Substance: CALCIUM
     Dosage: 500 MILLIGRAM
     Route: 065
  5. PHOSPHORUS [Concomitant]
     Active Substance: PHOSPHORUS
     Dosage: 260 MILLIGRAM
     Route: 065
  6. BORON [Concomitant]
     Active Substance: BORON
     Dosage: 5 MILLIGRAM 1 TAB BID
     Dates: start: 20190131
  7. BIOSIL [Concomitant]
     Dosage: COLINE 100MG SILICON 5MG 1 BID
     Dates: start: 20110615
  8. UNSPECIFIED INGREDIENT [Concomitant]
     Active Substance: UNSPECIFIED INGREDIENT
     Dosage: 2 TABS DAILY
     Route: 065
     Dates: start: 20140614
  9. HERBALS [Concomitant]
     Active Substance: HERBALS
     Dosage: 500 MILLIGRAM, QD
     Route: 065
     Dates: start: 20150413
  10. VITAMIN D3 [Concomitant]
     Active Substance: CHOLECALCIFEROL
     Dosage: 10,000IU
     Route: 065
     Dates: start: 2015
  11. ABSORBABLE GELATIN/COLLAGEN SPONGE [Concomitant]
     Dosage: 4 CAPS DAILY
     Route: 065
     Dates: start: 20130615
  12. PRASTERONE [Concomitant]
     Active Substance: PRASTERONE
     Dosage: 50 MILLIGRAM, QD
     Route: 065
     Dates: start: 20181227
  13. NIACIN [Concomitant]
     Active Substance: NIACIN
     Dosage: 1 TAB BID
     Route: 065
     Dates: start: 20181227
  14. DEXTROSE [Concomitant]
     Active Substance: DEXTROSE
     Dosage: 2 TABS DAILY
     Dates: start: 20191220
  15. PREGNENOLONE [Concomitant]
     Active Substance: PREGNENOLONE
     Dosage: 25 MILLIGRAM,2 TABS DAILY
     Route: 065
     Dates: start: 201901
  16. CHROMIUM [Concomitant]
     Active Substance: CHROMIC CHLORIDE\CHROMIUM
     Dosage: 200 MICROGRAM, QD
  17. DIETARY SUPPLEMENT [Concomitant]
     Active Substance: DIETARY SUPPLEMENT
     Dosage: 5 GRAM, QD

REACTIONS (4)
  - Pneumonia [Unknown]
  - Hip arthroplasty [Unknown]
  - Osteopenia [Not Recovered/Not Resolved]
  - Diarrhoea [Unknown]

NARRATIVE: CASE EVENT DATE: 20160501
